FAERS Safety Report 6365422-0 (Version None)
Quarter: 2009Q3

REPORT INFORMATION
  Report Type: 
  Country: None (occurrence: None)
  Receive Date: 20090919
  Receipt Date: 20090813
  Transmission Date: 20100115
  Serious: No
  Sender: FDA-Public Use
  Company Number: US-ABBOTT-09P-163-0591263-00

PATIENT
  Sex: Female
  Weight: 98.972 kg

DRUGS (3)
  1. HUMIRA [Suspect]
     Indication: PSORIASIS
     Dates: start: 20090806
  2. CONCERTA [Concomitant]
     Indication: DRUG USE FOR UNKNOWN INDICATION
  3. BUTAL [Concomitant]
     Indication: HEADACHE

REACTIONS (7)
  - ARTHRALGIA [None]
  - BACK PAIN [None]
  - DIZZINESS [None]
  - EXTRASYSTOLES [None]
  - EYE DISORDER [None]
  - HEADACHE [None]
  - VISION BLURRED [None]
